FAERS Safety Report 9886749 (Version 2)
Quarter: 2014Q1

REPORT INFORMATION
  Report Type: Spontaneous
  Country: FR (occurrence: FR)
  Receive Date: 20140210
  Receipt Date: 20140331
  Transmission Date: 20141002
  Serious: Yes (Hospitalization)
  Sender: FDA-Public Use
  Company Number: FR-BAXTER-2014BAX004971

PATIENT
  Age: 69 Year
  Sex: Female
  Weight: 52.8 kg

DRUGS (19)
  1. ENDOXAN 2000 MG, LYOPHILISAT POUR SOLUTION INJECTABLE [Suspect]
     Indication: PLASMA CELL MYELOMA
     Route: 042
     Dates: start: 20121120
  2. ENDOXAN 2000 MG, LYOPHILISAT POUR SOLUTION INJECTABLE [Suspect]
     Route: 042
     Dates: start: 20121210
  3. ENDOXAN 2000 MG, LYOPHILISAT POUR SOLUTION INJECTABLE [Suspect]
     Route: 042
     Dates: start: 20121231
  4. ENDOXAN 2000 MG, LYOPHILISAT POUR SOLUTION INJECTABLE [Suspect]
     Route: 042
     Dates: start: 20130121
  5. VELCADE [Suspect]
     Indication: PLASMA CELL MYELOMA
     Route: 042
     Dates: start: 20121120
  6. VELCADE [Suspect]
     Route: 042
     Dates: start: 20121210
  7. VELCADE [Suspect]
     Route: 042
     Dates: start: 20121231
  8. VELCADE [Suspect]
     Route: 042
     Dates: start: 20130121
  9. DEXAMETHASONE [Suspect]
     Indication: PLASMA CELL MYELOMA
     Route: 065
     Dates: start: 20121120, end: 20130202
  10. AREDIA [Concomitant]
     Indication: SUPPORTIVE CARE
     Route: 065
     Dates: start: 20121115
  11. SOLUMEDROL [Concomitant]
     Indication: PRODUCT USED FOR UNKNOWN INDICATION
     Route: 065
     Dates: start: 20121117
  12. BACTRIM [Concomitant]
     Indication: INFECTION PROPHYLAXIS
     Route: 065
  13. ZELITREX [Concomitant]
     Indication: INFECTION PROPHYLAXIS
     Route: 065
  14. PHENOXYMETHYLPENICILLIN [Concomitant]
     Indication: INFECTION PROPHYLAXIS
     Dosage: 3 TIMES
     Route: 065
  15. REVLIMID [Concomitant]
     Indication: PRODUCT USED FOR UNKNOWN INDICATION
     Route: 065
     Dates: start: 20130308
  16. TRAVATAN [Concomitant]
     Indication: EVIDENCE BASED TREATMENT
     Route: 065
  17. GELTIM [Concomitant]
     Indication: EVIDENCE BASED TREATMENT
     Route: 065
  18. CRESTOR [Concomitant]
     Indication: EVIDENCE BASED TREATMENT
     Route: 065
  19. PIASCLEDINE [Concomitant]
     Indication: EVIDENCE BASED TREATMENT
     Route: 065

REACTIONS (2)
  - Kaposi^s sarcoma [Recovering/Resolving]
  - Sepsis [Unknown]
